FAERS Safety Report 5830822-1 (Version None)
Quarter: 2008Q3

REPORT INFORMATION
  Report Type: 
  Country: None (occurrence: None)
  Receive Date: 20080801
  Receipt Date: 20071214
  Transmission Date: 20090109
  Serious: No
  Sender: FDA-Public Use
  Company Number: US-BRISTOL-MYERS SQUIBB COMPANY-14015259

PATIENT
  Age: 81 Year
  Sex: Female
  Weight: 66 kg

DRUGS (5)
  1. COUMADIN [Suspect]
     Route: 048
  2. ADVAIR DISKUS 100/50 [Concomitant]
  3. DIGITEK [Concomitant]
  4. SINGULAIR [Concomitant]
  5. ACTONEL [Concomitant]

REACTIONS (1)
  - BURNING SENSATION [None]
